FAERS Safety Report 24949631 (Version 1)
Quarter: 2025Q1

REPORT INFORMATION
  Report Type: Spontaneous
  Country: US (occurrence: US)
  Receive Date: 20250210
  Receipt Date: 20250210
  Transmission Date: 20250408
  Serious: Yes (Other)
  Sender: Unknown Manufacturer
  Company Number: US-KOANAAP-SML-US-2025-00103

PATIENT
  Sex: Female

DRUGS (8)
  1. CAPECITABINE [Suspect]
     Active Substance: CAPECITABINE
     Indication: Breast cancer
  2. DOCETAXEL [Suspect]
     Active Substance: DOCETAXEL
     Indication: Breast cancer
  3. IRINOTECAN [Suspect]
     Active Substance: IRINOTECAN
     Indication: Breast cancer
  4. IXABEPILONE [Suspect]
     Active Substance: IXABEPILONE
     Indication: Breast cancer
  5. ERIBULIN [Suspect]
     Active Substance: ERIBULIN
     Indication: Breast cancer
  6. CYCLOPHOSPHAMIDE [Suspect]
     Active Substance: CYCLOPHOSPHAMIDE
     Indication: Breast cancer
  7. METHOTREXATE [Suspect]
     Active Substance: METHOTREXATE
     Indication: Breast cancer
  8. FLUOROURACIL [Suspect]
     Active Substance: FLUOROURACIL
     Indication: Breast cancer

REACTIONS (4)
  - Drug ineffective [Unknown]
  - Disease progression [Unknown]
  - Therapy non-responder [Unknown]
  - Therapy partial responder [Unknown]
